FAERS Safety Report 5695535-8 (Version None)
Quarter: 2008Q2

REPORT INFORMATION
  Report Type: 
  Country: None (occurrence: None)
  Receive Date: 20080407
  Receipt Date: 20080325
  Transmission Date: 20081010
  Serious: Yes (Other)
  Sender: FDA-Public Use
  Company Number: DE-BRISTOL-MYERS SQUIBB COMPANY-14134340

PATIENT
  Age: 74 Year
  Sex: Female

DRUGS (8)
  1. ENDOXAN [Suspect]
     Indication: WEGENER'S GRANULOMATOSIS
     Dosage: DOSES TAKEN AS 850MG ON 04SEP07,02-NOV-2007-1100 MG,1150 ON 01DEC07 AND 04FEB08,1100MG ON 02JAN08.
     Route: 042
     Dates: start: 20070904, end: 20080204
  2. FLUSPIRILENE [Concomitant]
     Indication: DEPRESSION
     Dates: end: 20080201
  3. DECORTIN [Concomitant]
     Indication: GLOMERULONEPHRITIS
     Dosage: TAKEN ON 03 TO 05SEP07 500 MG IV
     Route: 048
     Dates: start: 20070906
  4. FORTECORTIN [Concomitant]
     Indication: GLOMERULONEPHRITIS
     Route: 042
     Dates: start: 20070903, end: 20070905
  5. AZATHIOPRINE [Concomitant]
     Indication: GLOMERULONEPHRITIS
     Route: 048
  6. MESNA [Concomitant]
     Indication: PROPHYLAXIS
     Route: 042
     Dates: start: 20070904, end: 20080204
  7. CO-TRIMOXAZOLE [Concomitant]
     Dates: start: 20070903, end: 20080303
  8. CYMBALTA [Concomitant]
     Indication: DEPRESSION

REACTIONS (12)
  - ALOPECIA [None]
  - ANAEMIA [None]
  - CATARACT [None]
  - CUSHING'S SYNDROME [None]
  - CYSTITIS HAEMORRHAGIC [None]
  - DYSPNOEA [None]
  - ESCHERICHIA INFECTION [None]
  - GENERAL PHYSICAL HEALTH DETERIORATION [None]
  - MENTAL IMPAIRMENT [None]
  - PARAESTHESIA [None]
  - TACHYCARDIA [None]
  - WHITE BLOOD CELL COUNT DECREASED [None]
